FAERS Safety Report 7151625-4 (Version None)
Quarter: 2010Q4

REPORT INFORMATION
  Report Type: 
  Country: None (occurrence: None)
  Receive Date: 20101210
  Receipt Date: 20101129
  Transmission Date: 20110411
  Serious: No
  Sender: FDA-Public Use
  Company Number: US-PFIZER INC-2010159293

PATIENT
  Sex: Male
  Weight: 7.71 kg

DRUGS (1)
  1. GENOTROPIN [Suspect]
     Indication: PREMATURE BABY
     Dosage: 0.2 MG, 1X/DAY
     Route: 058
     Dates: start: 20101117

REACTIONS (2)
  - ABNORMAL BEHAVIOUR [None]
  - PSYCHOMOTOR HYPERACTIVITY [None]
